FAERS Safety Report 8771331 (Version 2)
Quarter: 2012Q4

REPORT INFORMATION
  Report Type: 
  Country: BR (occurrence: BR)
  Receive Date: 20120906
  Receipt Date: 20120906
  Transmission Date: 20130627
  Serious: Yes (Other)
  Sender: FDA-Public Use
  Company Number: PHHY2012BR076133

PATIENT
  Age: 75 Year
  Sex: Female

DRUGS (6)
  1. FORASEQ [Suspect]
     Indication: CHRONIC OBSTRUCTIVE PULMONARY DISEASE
     Dosage: 1 DF, BID (12/400 mg, BID)
     Dates: start: 2002, end: 201203
  2. TIOTROPIUM [Concomitant]
     Dosage: 5 ug, QD
  3. OXYGEN [Concomitant]
     Dosage: 3 L/min, 15 h/day
  4. INDACATEROL [Concomitant]
     Dosage: 150 ug, QD
  5. ROFLUMILAST [Concomitant]
     Dosage: 500 ug, QD
  6. MOMETASONE [Concomitant]
     Dosage: 400 ug, QD

REACTIONS (19)
  - Emphysema [Unknown]
  - Dyspnoea [Recovering/Resolving]
  - Wheezing [Unknown]
  - Rales [Unknown]
  - Lung hyperinflation [Unknown]
  - Bronchial wall thickening [Unknown]
  - PO2 decreased [Unknown]
  - PCO2 increased [Unknown]
  - Forced expiratory volume decreased [Unknown]
  - Oxygen saturation decreased [Unknown]
  - Cardiac aneurysm [Unknown]
  - Pulmonary artery dilatation [Unknown]
  - Right atrial dilatation [Unknown]
  - Dilatation ventricular [Unknown]
  - Pulmonary arterial pressure abnormal [Unknown]
  - Right ventricular dysfunction [Unknown]
  - Tricuspid valve incompetence [Unknown]
  - Mitral valve incompetence [Unknown]
  - Heart rate decreased [Unknown]
